FAERS Safety Report 5600386-6 (Version None)
Quarter: 2007Q4

REPORT INFORMATION
  Report Type: 
  Country: None (occurrence: None)
  Receive Date: 20071226
  Receipt Date: 20070625
  Transmission Date: 20080405
  Serious: Yes (Hospitalization, Other)
  Sender: FDA-Public Use
  Company Number: 241563

PATIENT
  Age: 34 Year
  Sex: Female
  Weight: 56.7 kg

DRUGS (2)
  1. RAPTIVA [Suspect]
     Indication: PSORIASIS
     Dosage: 0.75 MG, 1/WEEK, SUBCUTANEOUS
     Route: 058
     Dates: start: 20030101
  2. ZETIA [Concomitant]

REACTIONS (1)
  - PNEUMONIA BACTERIAL [None]
